FAERS Safety Report 8996161 (Version 1)
Quarter: 2013Q1

REPORT INFORMATION
  Report Type: Spontaneous
  Country: CA (occurrence: CA)
  Receive Date: 20130103
  Receipt Date: 20130103
  Transmission Date: 20140127
  Serious: Yes (Hospitalization, Other)
  Sender: FDA-Public Use
  Company Number: CA-TEVA-378504USA

PATIENT
  Age: 57 Year
  Sex: Female

DRUGS (5)
  1. BISOPROLOL [Suspect]
     Indication: INTENTIONAL OVERDOSE
     Dosage: UNKNOWN QUANTITY OF BISOPROLOL 5MG
     Route: 048
  2. DILTIAZEM [Suspect]
     Indication: INTENTIONAL OVERDOSE
     Dosage: UNKNOWN QUANTITY OF DILTIAZEM 360MG (CONTROLLED RELEASE)
     Route: 048
  3. DIMENHYDRINATE [Suspect]
     Indication: INTENTIONAL OVERDOSE
     Route: 048
  4. CANDESARTAN CILEXETIL, HYDROCHLOROTHIAZIDE [Suspect]
     Indication: INTENTIONAL OVERDOSE
     Dosage: UNKNOWN QUANTITY OF CANDESARTAN CILEXETIL/HYDROCHLOROTHIAZIDE 16/12.5MG
     Route: 048
  5. PARACETAMOL, CODEINE PHOSPHATE, CAFFEINE [Suspect]
     Indication: INTENTIONAL OVERDOSE
     Route: 048

REACTIONS (3)
  - Cardiogenic shock [Recovered/Resolved]
  - Toxicity to various agents [Recovered/Resolved]
  - Intentional overdose [Recovered/Resolved]
